FAERS Safety Report 9307423 (Version 4)
Quarter: 2013Q3

REPORT INFORMATION
  Report Type: Spontaneous
  Country: FR (occurrence: FR)
  Receive Date: 20130524
  Receipt Date: 20130705
  Transmission Date: 20140515
  Serious: Yes (Hospitalization)
  Sender: FDA-Public Use
  Company Number: FR-009507513-1305FRA010653

PATIENT
  Age: 29 Year
  Sex: Female

DRUGS (2)
  1. ORGARAN [Suspect]
     Dosage: 4 DF, BID
     Route: 058
     Dates: start: 20130401
  2. ORGARAN [Suspect]
     Dosage: 2.5 DF, BID
     Route: 058

REACTIONS (3)
  - Abdominal wall haematoma [Recovered/Resolved]
  - Medication error [Unknown]
  - Maternal exposure during pregnancy [Recovered/Resolved]
